FAERS Safety Report 20190232 (Version 2)
Quarter: 2021Q4

REPORT INFORMATION
  Report Type: Spontaneous
  Country: US (occurrence: None)
  Receive Date: 20211215
  Receipt Date: 20211222
  Transmission Date: 20220303
  Serious: Yes (Other)
  Sender: FDA-Public Use
  Company Number: 2021A875677

PATIENT
  Age: 15181 Day
  Sex: Male
  Weight: 82.1 kg

DRUGS (1)
  1. SAPHNELO [Suspect]
     Active Substance: ANIFROLUMAB-FNIA
     Indication: Systemic lupus erythematosus
     Route: 042
     Dates: start: 20211124

REACTIONS (1)
  - Vascular rupture [Unknown]

NARRATIVE: CASE EVENT DATE: 20211212
